FAERS Safety Report 7746607-5 (Version None)
Quarter: 2011Q3

REPORT INFORMATION
  Report Type: 
  Country: None (occurrence: None)
  Receive Date: 20110908
  Receipt Date: 20110823
  Transmission Date: 20111222
  Serious: Yes (Other)
  Sender: FDA-Public Use
  Company Number: 2011080226

PATIENT
  Age: 64 Year
  Sex: Male

DRUGS (1)
  1. TORSEMIDE [Suspect]
     Indication: OEDEMA
     Dosage: 30 MG (30 MG, 1 IN 1 D), ORAL
     Route: 048
     Dates: start: 20110207, end: 20110214

REACTIONS (4)
  - ARRHYTHMIA [None]
  - VERTIGO [None]
  - MUSCULAR WEAKNESS [None]
  - PALPITATIONS [None]
